FAERS Safety Report 6806444-2 (Version None)
Quarter: 2010Q2

REPORT INFORMATION
  Report Type: 
  Country: None (occurrence: None)
  Receive Date: 20100629
  Receipt Date: 20080222
  Transmission Date: 20101027
  Serious: No
  Sender: FDA-Public Use
  Company Number: US-PFIZER INC-2008013467

PATIENT
  Sex: Male
  Weight: 106.59 kg

DRUGS (6)
  1. VIAGRA [Suspect]
     Indication: ERECTILE DYSFUNCTION
     Dates: start: 20040101, end: 20040101
  2. CAVERJECT [Suspect]
     Indication: ERECTILE DYSFUNCTION
  3. TOPROL-XL [Concomitant]
  4. ZETIA [Concomitant]
  5. LIPITOR [Concomitant]
  6. GEZOR [Concomitant]

REACTIONS (2)
  - DRUG INEFFECTIVE [None]
  - HEADACHE [None]
